FAERS Safety Report 8825515 (Version 2)
Quarter: 2012Q4

REPORT INFORMATION
  Report Type: 
  Country: US (occurrence: US)
  Receive Date: 20121004
  Receipt Date: 20121120
  Transmission Date: 20130627
  Serious: Yes (Life-Threatening, Hospitalization, Other)
  Sender: FDA-Public Use
  Company Number: US-MPIJNJ-2012-06841

PATIENT

DRUGS (6)
  1. VELCADE [Suspect]
     Indication: ACUTE MYELOID LEUKAEMIA
     Dosage: 1.3 mg/m2, Cyclic
     Route: 040
     Dates: start: 20120922, end: 20120929
  2. CYTARABINE [Suspect]
     Indication: ACUTE MYELOID LEUKAEMIA
     Dosage: 100 mg/m2, Cyclic
     Route: 042
     Dates: start: 20120922, end: 20120930
  3. CYTARABINE [Suspect]
     Dosage: UNK
     Route: 037
  4. CYTARABINE [Suspect]
     Dosage: UNK
     Route: 042
  5. ETOPOSIDE [Suspect]
     Indication: ACUTE MYELOID LEUKAEMIA
     Dosage: 100 mg/m2, Cyclic
     Route: 042
     Dates: start: 20120922, end: 20120926
  6. DAUNORUBICIN HYDROCHLORIDE [Suspect]
     Indication: ACUTE MYELOID LEUKAEMIA
     Dosage: 50 mg/m2, Cyclic
     Route: 042
     Dates: start: 20120922, end: 20120926

REACTIONS (3)
  - Left ventricular dysfunction [Not Recovered/Not Resolved]
  - Hypoxia [Unknown]
  - Renal impairment [Unknown]
